FAERS Safety Report 17115771 (Version 1)
Quarter: 2019Q4

REPORT INFORMATION
  Report Type: Spontaneous
  Country: US (occurrence: US)
  Receive Date: 20191204
  Receipt Date: 20191204
  Transmission Date: 20200122
  Serious: Yes (Congenital Anomaly, Other)
  Sender: FDA-Public Use
  Company Number: None

PATIENT
  Age: 65 Year
  Sex: Male

DRUGS (2)
  1. AFINITOR [Suspect]
     Active Substance: EVEROLIMUS
     Indication: RENAL CELL CARCINOMA
     Route: 048
     Dates: start: 20161116, end: 20191130
  2. PREDNISONE. [Concomitant]
     Active Substance: PREDNISONE
     Dates: start: 20191116, end: 20191130

REACTIONS (3)
  - Stomatitis [None]
  - Haemorrhage [None]
  - Rash [None]

NARRATIVE: CASE EVENT DATE: 20191130
